FAERS Safety Report 7047650-4 (Version None)
Quarter: 2010Q4

REPORT INFORMATION
  Report Type: 
  Country: None (occurrence: None)
  Receive Date: 20101014
  Receipt Date: 20101014
  Transmission Date: 20110411
  Serious: Yes (Hospitalization)
  Sender: FDA-Public Use
  Company Number: None

PATIENT
  Sex: Male
  Weight: 74.3 kg

DRUGS (5)
  1. CARBOPLATIN [Suspect]
     Indication: LUNG DISORDER
     Dosage: 181 MG
     Dates: start: 20101004
  2. CARBOPLATIN [Suspect]
     Indication: NON-SMALL CELL LUNG CANCER
     Dosage: 181 MG
     Dates: start: 20101004
  3. CARBOPLATIN [Suspect]
     Indication: RESPIRATORY DISORDER
     Dosage: 181 MG
     Dates: start: 20101004
  4. ERBITUX [Suspect]
     Dosage: 1229 MG
     Dates: start: 20101002
  5. TAXOL [Suspect]
     Dosage: 85 MG
     Dates: start: 20101004

REACTIONS (3)
  - HYDROPNEUMOTHORAX [None]
  - PLEURAL EFFUSION [None]
  - REFUSAL OF TREATMENT BY PATIENT [None]
